FAERS Safety Report 19749323 (Version 1)
Quarter: 2021Q3

REPORT INFORMATION
  Report Type: Spontaneous
  Country: US (occurrence: US)
  Receive Date: 20210826
  Receipt Date: 20210826
  Transmission Date: 20211014
  Serious: Yes (Hospitalization)
  Sender: FDA-Public Use
  Company Number: US-ORG100016242-2021000437

PATIENT

DRUGS (11)
  1. KETOROLAC [Concomitant]
     Active Substance: KETOROLAC TROMETHAMINE
     Dosage: NOT PROVIDED
     Route: 065
  2. EXPAREL [Suspect]
     Active Substance: BUPIVACAINE
     Dosage: 50 ML VOLUME: 20 ML/266 MG, 30 ML 0.25% BUPIVACAINE, 100 ML INJECTABLE SALINE.
     Route: 065
  3. MAGNESIUM [Concomitant]
     Active Substance: MAGNESIUM
     Dosage: NOT PROVIDED
     Route: 042
  4. ALVIMOPAN [Concomitant]
     Active Substance: ALVIMOPAN
     Dosage: PRIOR TO SURGERY AND POST?OPERATIVELY.
     Route: 065
  5. ACETAMINOPHEN. [Concomitant]
     Active Substance: ACETAMINOPHEN
     Dosage: INTRAVENOUS OR ORAL
     Route: 065
  6. BUPIVACAINE. [Suspect]
     Active Substance: BUPIVACAINE
     Dosage: 50 ML VOLUME: 20 ML/266 MG, 30 ML 0.25% BUPIVACAINE, 100 ML INJECTABLE SALINE.
     Route: 065
  7. SALINE [Concomitant]
     Active Substance: SODIUM CHLORIDE
     Dosage: 50 ML VOLUME: 20 ML/266 MG, 30 ML 0.25% BUPIVACAINE, 100 ML INJECTABLE SALINE.
     Route: 065
  8. ANTIBIOTICS [Concomitant]
     Active Substance: UNSPECIFIED INGREDIENT
     Dosage: NOT PROVIDED
     Route: 065
  9. IBUPROFEN. [Concomitant]
     Active Substance: IBUPROFEN
     Dosage: NOT PROVIDED
     Route: 065
  10. HEPARIN [Concomitant]
     Active Substance: HEPARIN SODIUM
     Dosage: NOT PROVIDED
     Route: 058
  11. GABAPENTIN. [Concomitant]
     Active Substance: GABAPENTIN
     Dosage: NOT PROVIDED
     Route: 065

REACTIONS (1)
  - Hospitalisation [Unknown]
